FAERS Safety Report 17435938 (Version 3)
Quarter: 2020Q1

REPORT INFORMATION
  Report Type: Spontaneous
  Country: FI (occurrence: FI)
  Receive Date: 20200219
  Receipt Date: 20200318
  Transmission Date: 20200409
  Serious: Yes (Life-Threatening, Hospitalization, Other)
  Sender: FDA-Public Use
  Company Number: FI-PFIZER INC-2020072963

PATIENT
  Age: 21 Year
  Sex: Female

DRUGS (3)
  1. MYLOTARG [Suspect]
     Active Substance: GEMTUZUMAB OZOGAMICIN
     Indication: ACUTE MYELOID LEUKAEMIA REFRACTORY
     Dosage: 3 MG/M2 X1, CYCLIC (DAYS 1, 4 AND 7: 24DEC, 27DEC AND 30 DEC2019)
     Route: 042
     Dates: start: 20191224, end: 20191230
  2. CYTARABINE. [Concomitant]
     Active Substance: CYTARABINE
     Indication: ACUTE MYELOID LEUKAEMIA REFRACTORY
     Dosage: UNK
  3. IDARUBICINE [Concomitant]
     Active Substance: IDARUBICIN
     Indication: ACUTE MYELOID LEUKAEMIA REFRACTORY
     Dosage: UNK

REACTIONS (19)
  - Neutrophil count decreased [Not Recovered/Not Resolved]
  - Monocytopenia [Not Recovered/Not Resolved]
  - Blood lactate dehydrogenase increased [Not Recovered/Not Resolved]
  - Macrophages decreased [Not Recovered/Not Resolved]
  - Bacterial sepsis [Not Recovered/Not Resolved]
  - Pyrexia [Unknown]
  - Herpes simplex [Unknown]
  - Haemoglobin increased [Not Recovered/Not Resolved]
  - Clostridium difficile colitis [Unknown]
  - Serum ferritin increased [Not Recovered/Not Resolved]
  - Cytopenia [Not Recovered/Not Resolved]
  - Human herpesvirus 6 infection [Not Recovered/Not Resolved]
  - Intravascular haemolysis [Not Recovered/Not Resolved]
  - Seizure [Recovering/Resolving]
  - Stomatitis [Unknown]
  - Haptoglobin increased [Not Recovered/Not Resolved]
  - Haemoglobin decreased [Unknown]
  - Pericardial effusion [Unknown]
  - Cytokine abnormal [Recovering/Resolving]

NARRATIVE: CASE EVENT DATE: 20200103
